FAERS Safety Report 17646998 (Version 2)
Quarter: 2021Q1

REPORT INFORMATION
  Report Type: Spontaneous
  Country: CA (occurrence: CA)
  Receive Date: 20200408
  Receipt Date: 20210326
  Transmission Date: 20210419
  Serious: Yes (Other)
  Sender: FDA-Public Use
  Company Number: CA-SAMSUNG BIOEPIS-SB-2020-11290

PATIENT
  Age: 61 Year
  Sex: Male
  Weight: 64 kg

DRUGS (2)
  1. INFLIXIMAB [Suspect]
     Active Substance: INFLIXIMAB
     Route: 042
  2. INFLIXIMAB [Suspect]
     Active Substance: INFLIXIMAB
     Indication: CROHN^S DISEASE
     Route: 042

REACTIONS (12)
  - Intentional product use issue [Recovered/Resolved]
  - Lung neoplasm malignant [Recovered/Resolved]
  - Gait disturbance [Recovered/Resolved]
  - Infusion site erythema [Recovered/Resolved]
  - Infusion site swelling [Recovered/Resolved]
  - Inappropriate schedule of product administration [Recovered/Resolved]
  - Off label use [Recovered/Resolved]
  - Ingrowing nail [Recovered/Resolved]
  - Intentional dose omission [Recovered/Resolved]
  - Product use issue [Recovered/Resolved]
  - Blood pressure fluctuation [Recovered/Resolved]
  - Infusion site extravasation [Recovered/Resolved]
